FAERS Safety Report 4815815-5 (Version None)
Quarter: 2005Q4

REPORT INFORMATION
  Report Type: 
  Country: None (occurrence: None)
  Receive Date: 20051027
  Receipt Date: 20051011
  Transmission Date: 20060501
  Serious: Yes (Hospitalization)
  Sender: FDA-Public Use
  Company Number: DSA_27205_2005

PATIENT
  Age: 32 Year
  Sex: Female

DRUGS (2)
  1. TAVOR [Suspect]
     Dosage: 10 MG ONCE PO
     Route: 048
     Dates: start: 20050923, end: 20050923
  2. ALCOHOL/WINE [Suspect]
     Dates: start: 20050923, end: 20050923

REACTIONS (5)
  - ALCOHOL USE [None]
  - FEELING DRUNK [None]
  - INTENTIONAL OVERDOSE [None]
  - SOMNOLENCE [None]
  - TACHYCARDIA [None]
